FAERS Safety Report 7092015-2 (Version None)
Quarter: 2010Q4

REPORT INFORMATION
  Report Type: 
  Country: None (occurrence: None)
  Receive Date: 20101109
  Receipt Date: 20080909
  Transmission Date: 20110411
  Serious: No
  Sender: FDA-Public Use
  Company Number: US-KINGPHARMUSA00001-K200801059

PATIENT
  Age: 59 Year
  Sex: Female

DRUGS (1)
  1. SKELAXIN [Suspect]

REACTIONS (5)
  - BONE PAIN [None]
  - DENTAL DISCOMFORT [None]
  - DERMATITIS CONTACT [None]
  - FEELING ABNORMAL [None]
  - INFLUENZA LIKE ILLNESS [None]
